FAERS Safety Report 13070015 (Version 1)
Quarter: 2016Q4

REPORT INFORMATION
  Report Type: Spontaneous
  Country: US (occurrence: US)
  Receive Date: 20161228
  Receipt Date: 20161228
  Transmission Date: 20170207
  Serious: Yes (Other)
  Sender: FDA-Public Use
  Company Number: US-BAYER-2016-241038

PATIENT
  Age: 80 Year
  Sex: Male
  Weight: 82 kg

DRUGS (1)
  1. ALEVE [Suspect]
     Active Substance: NAPROXEN SODIUM
     Indication: PAIN
     Dosage: 1 DF, ONCE
     Route: 048
     Dates: start: 2016, end: 2016

REACTIONS (4)
  - Renal haemorrhage [Recovered/Resolved]
  - Intestinal haemorrhage [Recovered/Resolved]
  - Blood urine present [Recovered/Resolved]
  - Urinary bladder haemorrhage [Recovered/Resolved]
